FAERS Safety Report 5408398-2 (Version None)
Quarter: 2007Q3

REPORT INFORMATION
  Report Type: 
  Country: None (occurrence: None)
  Receive Date: 20070806
  Receipt Date: 20070713
  Transmission Date: 20080115
  Serious: Yes (Other)
  Sender: FDA-Public Use
  Company Number: 2217-271

PATIENT
  Sex: 0

DRUGS (1)
  1. TRIAMCINOLONE ACETONIDE [Suspect]
     Dosage: 4 MG ONCE EY

REACTIONS (4)
  - ENDOPHTHALMITIS [None]
  - NO THERAPEUTIC RESPONSE [None]
  - STAPHYLOCOCCAL INFECTION [None]
  - VISUAL ACUITY REDUCED [None]
